FAERS Safety Report 6734215-4 (Version None)
Quarter: 2010Q2

REPORT INFORMATION
  Report Type: 
  Country: None (occurrence: None)
  Receive Date: 20100518
  Receipt Date: 20100503
  Transmission Date: 20101027
  Serious: Yes (Life-Threatening, Hospitalization)
  Sender: FDA-Public Use
  Company Number: DSU-2010-01919

PATIENT
  Age: 57 Year
  Sex: Female

DRUGS (1)
  1. BENICAR [Suspect]
     Indication: HYPERTENSION
     Dosage: 1/2 TABLET QD, PER ORAL
     Route: 048
     Dates: start: 20100201

REACTIONS (2)
  - BLOOD PRESSURE INCREASED [None]
  - DRUG ADMINISTRATION ERROR [None]
